FAERS Safety Report 6221693-2 (Version None)
Quarter: 2009Q2

REPORT INFORMATION
  Report Type: 
  Country: None (occurrence: None)
  Receive Date: 20090605
  Receipt Date: 20090526
  Transmission Date: 20091009
  Serious: Yes (Other)
  Sender: FDA-Public Use
  Company Number: US-WYE-H09460109

PATIENT
  Age: 17 Year
  Sex: Female

DRUGS (1)
  1. ROBITUSSIN COUGH AND COLD LONG ACTING (CHLORPHENIRAMINE MALEATE/DEXTRO [Suspect]
     Dosage: ORAL
     Route: 048

REACTIONS (3)
  - DRUG EXPOSURE DURING PREGNANCY [None]
  - INTENTIONAL DRUG MISUSE [None]
  - MULTIPLE DRUG OVERDOSE INTENTIONAL [None]
